FAERS Safety Report 21714631 (Version 2)
Quarter: 2023Q1

REPORT INFORMATION
  Report Type: Report from Study
  Country: US (occurrence: US)
  Receive Date: 20221212
  Receipt Date: 20230313
  Transmission Date: 20230417
  Serious: No
  Sender: FDA-Public Use
  Company Number: US-ABBVIE-4187983

PATIENT
  Age: 64 Year
  Sex: Male

DRUGS (4)
  1. SKYRIZI [Suspect]
     Active Substance: RISANKIZUMAB-RZAA
     Indication: Psoriasis
     Dosage: FORM STRENGTH: 150 MG
     Route: 058
     Dates: start: 202211
  2. SKYRIZI [Suspect]
     Active Substance: RISANKIZUMAB-RZAA
     Dosage: FORM STRENGTH: 150 MG WEEK 0
     Route: 058
     Dates: start: 20220722, end: 20220722
  3. SKYRIZI [Suspect]
     Active Substance: RISANKIZUMAB-RZAA
     Dosage: FORM STRENGTH: 150 MG WEEK 4
     Route: 058
     Dates: start: 20220822, end: 20220822
  4. SKYRIZI [Suspect]
     Active Substance: RISANKIZUMAB-RZAA
     Route: 058
     Dates: start: 20220722, end: 20220722

REACTIONS (4)
  - Burning sensation [Unknown]
  - Therapeutic product effect incomplete [Unknown]
  - General physical health deterioration [Unknown]
  - Pruritus [Unknown]

NARRATIVE: CASE EVENT DATE: 20221031
